FAERS Safety Report 9574747 (Version 1)
Quarter: 2013Q4

REPORT INFORMATION
  Report Type: Spontaneous
  Country: US (occurrence: US)
  Receive Date: 20131001
  Receipt Date: 20131001
  Transmission Date: 20140711
  Serious: Yes (Death, Other)
  Sender: FDA-Public Use
  Company Number: US-JNJFOC-20130913823

PATIENT
  Sex: 0

DRUGS (5)
  1. DOXORUBICIN HYDROCHLORIDE [Suspect]
     Indication: NEUROBLASTOMA
     Dosage: 3 DAYS CONTINUOUS INFUSION
     Route: 042
  2. CYCLOPHOSPHAMIDE [Suspect]
     Indication: NEUROBLASTOMA
     Dosage: 2 DAYS, CONTINUOUS INFUSION
     Route: 042
  3. VINCRISTINE [Suspect]
     Indication: NEUROBLASTOMA
     Dosage: 3 DAYS, CONTINUOUS INFUSION
     Route: 042
  4. CISPLATIN [Suspect]
     Indication: NEUROBLASTOMA
     Dosage: TIMES 4 DAYS
     Route: 042
  5. ETOPOSIDE [Suspect]
     Indication: NEUROBLASTOMA
     Route: 042

REACTIONS (10)
  - Pharyngitis [Unknown]
  - Tumour haemorrhage [Fatal]
  - Fungal infection [Fatal]
  - Viral infection [Fatal]
  - Blood creatinine increased [Unknown]
  - Cardiac disorder [Unknown]
  - Deafness [Unknown]
  - Stomatitis [Unknown]
  - Febrile neutropenia [Unknown]
  - Oncologic complication [Fatal]
